FAERS Safety Report 9825289 (Version 1)
Quarter: 2014Q1

REPORT INFORMATION
  Report Type: Spontaneous
  Country: US (occurrence: None)
  Receive Date: 20140115
  Receipt Date: 20140115
  Transmission Date: 20141002
  Serious: Yes (Other)
  Sender: FDA-Public Use
  Company Number: None

PATIENT
  Age: 71 Year
  Sex: Female

DRUGS (3)
  1. DEXAMETHASONE [Suspect]
     Indication: PLASMA CELL MYELOMA
  2. KYPROLIS [Suspect]
     Indication: PLASMA CELL MYELOMA
  3. CYTOXAN [Concomitant]

REACTIONS (4)
  - Plasma cells increased [None]
  - Spinal compression fracture [None]
  - Plasma cell myeloma [None]
  - Rotator cuff syndrome [None]
